FAERS Safety Report 5146184-1 (Version None)
Quarter: 2006Q4

REPORT INFORMATION
  Report Type: 
  Country: None (occurrence: None)
  Receive Date: 20061106
  Receipt Date: 20061106
  Transmission Date: 20070319
  Serious: Yes (Life-Threatening, Other)
  Sender: FDA-Public Use
  Company Number: None

PATIENT
  Age: 54 Year
  Sex: Female
  Weight: 120.2032 kg

DRUGS (1)
  1. PAXIL CR [Suspect]
     Indication: DEPRESSION
     Dosage: 2 TABLETS 1 TIME A DAY

REACTIONS (10)
  - ASTHENIA [None]
  - CRYING [None]
  - DRUG WITHDRAWAL SYNDROME [None]
  - DYSARTHRIA [None]
  - DYSPNOEA [None]
  - EYE MOVEMENT DISORDER [None]
  - MALAISE [None]
  - MIGRAINE [None]
  - MOVEMENT DISORDER [None]
  - SCREAMING [None]
